FAERS Safety Report 5926219-6 (Version None)
Quarter: 2008Q4

REPORT INFORMATION
  Report Type: 
  Country: None (occurrence: None)
  Receive Date: 20081017
  Receipt Date: 20081002
  Transmission Date: 20090506
  Serious: Yes (Hospitalization)
  Sender: FDA-Public Use
  Company Number: 2008BI014524

PATIENT
  Age: 58 Year
  Sex: Female
  Weight: 99 kg

DRUGS (2)
  1. TYSABRI [Suspect]
     Indication: MULTIPLE SCLEROSIS
     Dosage: 300 MG;QM;IV
     Route: 042
     Dates: start: 20070430
  2. AVONEX(PREV.) [Concomitant]

REACTIONS (4)
  - ATRIAL FIBRILLATION [None]
  - CHOLECYSTECTOMY [None]
  - KNEE OPERATION [None]
  - MYOCARDIAL INFARCTION [None]
